FAERS Safety Report 6247791-5 (Version None)
Quarter: 2009Q2

REPORT INFORMATION
  Report Type: 
  Country: None (occurrence: None)
  Receive Date: 20090626
  Receipt Date: 20090619
  Transmission Date: 20091009
  Serious: Yes (Other)
  Sender: FDA-Public Use
  Company Number: NL-BAYER-200923545GPV

PATIENT
  Sex: Female

DRUGS (3)
  1. CIPROFLOXACIN HCL [Suspect]
     Indication: PYREXIA
     Dosage: UNIT DOSE: 250 MG
     Route: 048
     Dates: start: 20090223, end: 20090302
  2. ANTITHROMBOTIC THERAPY [Concomitant]
     Indication: ESSENTIAL THROMBOCYTHAEMIA
     Route: 065
  3. ANTITHROMBOTIC THERAPY (NOS) [Concomitant]
     Indication: ESSENTIAL THROMBOCYTHAEMIA
     Route: 065

REACTIONS (2)
  - PULMONARY EMBOLISM [None]
  - THROMBOCYTHAEMIA [None]
